FAERS Safety Report 26001193 (Version 1)
Quarter: 2025Q4

REPORT INFORMATION
  Report Type: Spontaneous
  Country: US (occurrence: US)
  Receive Date: 20251105
  Receipt Date: 20251105
  Transmission Date: 20260118
  Serious: Yes (Death, Other)
  Sender: AMGEN
  Company Number: US-AMGEN-USASP2025213623

PATIENT

DRUGS (4)
  1. PREDNISONE [Suspect]
     Active Substance: PREDNISONE
     Indication: Immunosuppressant drug therapy
     Dosage: UNK
     Route: 065
  2. THYMOGLOBULIN [Concomitant]
     Active Substance: LAPINE T-LYMPHOCYTE IMMUNE GLOBULIN
     Indication: Immunosuppressant drug therapy
     Dosage: 1.5 MILLIGRAM/KILOGRAM, OF ACTUAL BODY WEIGHT INTRAVENOUSLY OVER 4-6 H
     Route: 040
  3. TACROLIMUS [Concomitant]
     Active Substance: TACROLIMUS
     Indication: Immunosuppressant drug therapy
  4. MYCOPHENOLATE MOFETIL [Concomitant]
     Active Substance: MYCOPHENOLATE MOFETIL
     Indication: Immunosuppressant drug therapy

REACTIONS (13)
  - Death [Fatal]
  - Polyomavirus viraemia [Unknown]
  - Polyomavirus-associated nephropathy [Unknown]
  - Kidney transplant rejection [Unknown]
  - Transplant failure [Unknown]
  - Ureteric stenosis [Unknown]
  - Prostate cancer [Unknown]
  - Renal cancer [Unknown]
  - Bladder cancer [Unknown]
  - Transitional cell carcinoma [Unknown]
  - Transplant rejection [Unknown]
  - Ureteric cancer [Unknown]
  - Donor specific antibody present [Unknown]
